FAERS Safety Report 5208900-X (Version None)
Quarter: 2007Q1

REPORT INFORMATION
  Report Type: 
  Country: None (occurrence: None)
  Receive Date: 20070116
  Receipt Date: 20070108
  Transmission Date: 20070707
  Serious: Yes (Hospitalization)
  Sender: FDA-Public Use
  Company Number: FR-AVENTIS-200613786FR

PATIENT
  Age: 50 Year
  Sex: Male

DRUGS (3)
  1. RIFADIN [Suspect]
     Indication: RENAL TUBERCULOSIS
     Route: 048
     Dates: start: 20060111, end: 20061214
  2. RIMIFON [Suspect]
     Indication: RENAL TUBERCULOSIS
     Route: 048
     Dates: start: 20060112, end: 20061214
  3. MYAMBUTOL [Suspect]
     Indication: RENAL TUBERCULOSIS
     Route: 048
     Dates: start: 20060301, end: 20060601

REACTIONS (5)
  - CHORIORETINITIS [None]
  - HYPOACUSIS [None]
  - OPTIC NEUROPATHY [None]
  - RETINAL PIGMENT EPITHELIOPATHY [None]
  - VISUAL DISTURBANCE [None]
